FAERS Safety Report 10889506 (Version 4)
Quarter: 2015Q2

REPORT INFORMATION
  Report Type: Spontaneous
  Country: JP (occurrence: JP)
  Receive Date: 20150305
  Receipt Date: 20150501
  Transmission Date: 20150821
  Serious: Yes (Hospitalization, Other)
  Sender: FDA-Public Use
  Company Number: JP-ABBVIE-15P-087-1356551-00

PATIENT
  Age: 82 Year
  Sex: Male
  Weight: 50.9 kg

DRUGS (2)
  1. LEUPLIN [Suspect]
     Active Substance: LEUPROLIDE ACETATE
     Indication: PROSTATE CANCER
     Route: 058
     Dates: start: 20131115
  2. CASODEX [Suspect]
     Active Substance: BICALUTAMIDE
     Indication: PROSTATE CANCER
     Route: 048
     Dates: start: 20130919, end: 20150223

REACTIONS (4)
  - Pneumonia [Unknown]
  - Metastases to lung [Not Recovered/Not Resolved]
  - Platelet count decreased [Recovering/Resolving]
  - Interstitial lung disease [Recovering/Resolving]

NARRATIVE: CASE EVENT DATE: 20150224
